FAERS Safety Report 6306506-2 (Version None)
Quarter: 2009Q3

REPORT INFORMATION
  Report Type: 
  Country: None (occurrence: None)
  Receive Date: 20090812
  Receipt Date: 20090804
  Transmission Date: 20100115
  Serious: Yes (Other)
  Sender: FDA-Public Use
  Company Number: B0587120A

PATIENT
  Age: 39 Year
  Sex: Female

DRUGS (2)
  1. NICORETTE [Suspect]
     Indication: SMOKING CESSATION THERAPY
     Dosage: 60MG PER DAY
     Route: 048
     Dates: start: 19950601
  2. LEVOTHYROXINE [Concomitant]

REACTIONS (5)
  - ANXIETY [None]
  - DEPENDENCE [None]
  - DEPRESSION [None]
  - INCORRECT DRUG ADMINISTRATION DURATION [None]
  - PANIC REACTION [None]
